FAERS Safety Report 6617810-2 (Version None)
Quarter: 2010Q1

REPORT INFORMATION
  Report Type: 
  Country: None (occurrence: None)
  Receive Date: 20100308
  Receipt Date: 20100301
  Transmission Date: 20100710
  Serious: Yes (Other)
  Sender: FDA-Public Use
  Company Number: PHHY2010BR12128

PATIENT
  Sex: Male

DRUGS (4)
  1. DIOVAN HCT [Suspect]
     Dosage: 160/12.5 MG (1 TABLET DAILY)
     Dates: start: 20100129
  2. DIOVAN HCT [Suspect]
     Dosage: UNK, (HALF A TABLET DAILY)
  3. AMARYL [Concomitant]
     Indication: DIABETES MELLITUS
     Dosage: UNK,(1 TABLET DAILY)
     Dates: start: 20100128
  4. GALVUS MET [Concomitant]
     Indication: DIABETES MELLITUS
     Dosage: UNK,92 TABLETS DAILY)

REACTIONS (1)
  - BLOOD PRESSURE DECREASED [None]
